FAERS Safety Report 17580919 (Version 1)
Quarter: 2020Q1

REPORT INFORMATION
  Report Type: Spontaneous
  Country: US (occurrence: US)
  Receive Date: 20200320
  Receipt Date: 20200320
  Transmission Date: 20200409
  Serious: No
  Sender: FDA-Public Use
  Company Number: None

PATIENT

DRUGS (2)
  1. CARBOPLATIN IV SOL 150MG/15ML [Suspect]
     Active Substance: CARBOPLATIN
     Dosage: ?          OTHER FREQUENCY:OTHER;?
     Route: 042
     Dates: start: 202003
  2. PACLITAXEL. [Concomitant]
     Active Substance: PACLITAXEL

REACTIONS (1)
  - Off label use [None]

NARRATIVE: CASE EVENT DATE: 20200320
